FAERS Safety Report 8934945 (Version 2)
Quarter: 2012Q4

REPORT INFORMATION
  Report Type: 
  Country: JP (occurrence: JP)
  Receive Date: 20121129
  Receipt Date: 20121214
  Transmission Date: 20130627
  Serious: Yes (Other)
  Sender: FDA-Public Use
  Company Number: JP-BAXTER-2012BAX025440

PATIENT
  Sex: Female
  Weight: 2.41 kg

DRUGS (2)
  1. ENDOXAN CYCLOPHOSPHAMIDE [Suspect]
     Indication: DRUG EXPOSURE VIA MOTHER
     Route: 064
  2. DOXORUBICIN [Suspect]
     Indication: DRUG EXPOSURE VIA MOTHER
     Route: 064

REACTIONS (3)
  - Neonatal respiratory distress syndrome [Recovering/Resolving]
  - Foetal exposure during pregnancy [Recovering/Resolving]
  - Maternal drugs affecting foetus [None]
